FAERS Safety Report 11734653 (Version 1)
Quarter: 2015Q4

REPORT INFORMATION
  Report Type: Spontaneous
  Country: US (occurrence: None)
  Receive Date: 20151112
  Receipt Date: 20151112
  Transmission Date: 20160304
  Serious: Yes (Life-Threatening, Hospitalization)
  Sender: FDA-Public Use
  Company Number: None

PATIENT
  Age: 54 Year
  Sex: Female
  Weight: 49 kg

DRUGS (7)
  1. CALCIUM [Concomitant]
     Active Substance: CALCIUM
  2. MULTIVITAMIN [Concomitant]
     Active Substance: VITAMINS
  3. SYNTHROID [Concomitant]
     Active Substance: LEVOTHYROXINE SODIUM
  4. FARXIGA [Suspect]
     Active Substance: DAPAGLIFLOZIN PROPANEDIOL
     Indication: DIABETES MELLITUS
     Route: 048
  5. PROLIA [Concomitant]
     Active Substance: DENOSUMAB
  6. ASPIRIN. [Concomitant]
     Active Substance: ASPIRIN
  7. INSULIN PUMP [Concomitant]
     Active Substance: INSULIN NOS

REACTIONS (4)
  - Dehydration [None]
  - Acute kidney injury [None]
  - Weight decreased [None]
  - Diabetic ketoacidosis [None]

NARRATIVE: CASE EVENT DATE: 20150811
